FAERS Safety Report 19657102 (Version 1)
Quarter: 2021Q3

REPORT INFORMATION
  Report Type: Spontaneous
  Country: IT (occurrence: IT)
  Receive Date: 20210804
  Receipt Date: 20210804
  Transmission Date: 20211014
  Serious: Yes (Other)
  Sender: FDA-Public Use
  Company Number: IT-PFIZER INC-202100939571

PATIENT
  Age: 59 Year
  Sex: Female
  Weight: 60 kg

DRUGS (2)
  1. INLYTA [Suspect]
     Active Substance: AXITINIB
     Indication: RENAL NEOPLASM
     Dosage: 2 DF, 1X/DAY
     Route: 048
  2. KEYTRUDA [Interacting]
     Active Substance: PEMBROLIZUMAB
     Indication: RENAL NEOPLASM
     Dosage: 200 MG, CYCLIC
     Route: 042

REACTIONS (2)
  - Drug interaction [Unknown]
  - Hepatotoxicity [Recovered/Resolved]

NARRATIVE: CASE EVENT DATE: 20210511
